FAERS Safety Report 15491083 (Version 2)
Quarter: 2024Q4

REPORT INFORMATION
  Report Type: Spontaneous
  Country: US (occurrence: US)
  Receive Date: 20181012
  Receipt Date: 20241207
  Transmission Date: 20250115
  Serious: Yes (Death, Life-Threatening, Hospitalization, Other)
  Sender: AUROBINDO
  Company Number: US-AUROBINDO-AUR-APL-2018-048711

PATIENT
  Age: 8 Decade
  Sex: Male

DRUGS (2)
  1. PREDNISONE [Suspect]
     Active Substance: PREDNISONE
     Indication: Chronic obstructive pulmonary disease
     Dosage: 10 MILLIGRAM, DAILY
     Route: 065
  2. PREDNISONE [Suspect]
     Active Substance: PREDNISONE
     Indication: Silicosis

REACTIONS (15)
  - Cutaneous nocardiosis [Fatal]
  - Burkholderia cepacia complex infection [Fatal]
  - Pneumonia [Fatal]
  - Septic shock [Fatal]
  - Cerebral nocardiosis [Fatal]
  - Acute respiratory failure [Fatal]
  - Pulseless electrical activity [Fatal]
  - Cardiac arrest [Fatal]
  - Nocardiosis [Unknown]
  - Muscle spasms [Unknown]
  - Malaise [Unknown]
  - Asthenia [Unknown]
  - Decreased appetite [Unknown]
  - Muscular weakness [Unknown]
  - Confusional state [Unknown]
